FAERS Safety Report 5714146-9 (Version None)
Quarter: 2008Q2

REPORT INFORMATION
  Report Type: 
  Country: None (occurrence: None)
  Receive Date: 20080423
  Receipt Date: 20070413
  Transmission Date: 20081010
  Serious: No
  Sender: FDA-Public Use
  Company Number: US-KINGPHARMUSA00001-K200700475

PATIENT

DRUGS (1)
  1. SKELAXIN [Suspect]
     Indication: MUSCLE DISORDER
     Dosage: 400 MG, UNK
     Route: 048

REACTIONS (2)
  - ABDOMINAL DISTENSION [None]
  - DYSPEPSIA [None]
